FAERS Safety Report 24372092 (Version 2)
Quarter: 2025Q1

REPORT INFORMATION
  Report Type: Report from Study
  Country: DE (occurrence: DE)
  Receive Date: 20240927
  Receipt Date: 20250228
  Transmission Date: 20250409
  Serious: No
  Sender: ROCHE
  Company Number: DE-ML39632-2301337-0

PATIENT
  Age: 61 Year
  Sex: Female

DRUGS (5)
  1. OCREVUS [Suspect]
     Active Substance: OCRELIZUMAB
     Indication: Multiple sclerosis relapse
     Route: 042
     Dates: start: 20180921, end: 20181005
  2. OCREVUS [Suspect]
     Active Substance: OCRELIZUMAB
     Route: 042
     Dates: start: 20190305
  3. OCREVUS [Suspect]
     Active Substance: OCRELIZUMAB
     Route: 042
     Dates: start: 20240322, end: 20240322
  4. ATORVASTATIN [Concomitant]
     Active Substance: ATORVASTATIN
     Route: 048
     Dates: start: 20200312, end: 20200729
  5. ASPIRIN [Concomitant]
     Active Substance: ASPIRIN
     Route: 048
     Dates: start: 20200312

REACTIONS (2)
  - CD4 lymphocytes increased [Not Recovered/Not Resolved]
  - CD4 lymphocytes decreased [Unknown]

NARRATIVE: CASE EVENT DATE: 20240906
